FAERS Safety Report 6730599-1 (Version None)
Quarter: 2010Q2

REPORT INFORMATION
  Report Type: 
  Country: None (occurrence: None)
  Receive Date: 20100513
  Receipt Date: 20100428
  Transmission Date: 20101027
  Serious: Yes (Death, Hospitalization)
  Sender: FDA-Public Use
  Company Number: KV201000117

PATIENT
  Age: 59 Year
  Sex: Male
  Weight: 80.3 kg

DRUGS (38)
  1. MORPHINE SULFATE [Suspect]
     Indication: PAIN
     Dosage: 30 MG, BID, ORAL; 45MG, BID, ORAL; 30 MG, QD, ORAL; 45 MG, TID, ORAL; 60MG, TID, ORAL
     Route: 048
     Dates: start: 20080117, end: 20080215
  2. MORPHINE SULFATE [Suspect]
     Indication: PAIN
     Dosage: 30 MG, BID, ORAL; 45MG, BID, ORAL; 30 MG, QD, ORAL; 45 MG, TID, ORAL; 60MG, TID, ORAL
     Route: 048
     Dates: start: 20080201, end: 20080703
  3. MORPHINE SULFATE [Suspect]
     Indication: PAIN
     Dosage: 30 MG, BID, ORAL; 45MG, BID, ORAL; 30 MG, QD, ORAL; 45 MG, TID, ORAL; 60MG, TID, ORAL
     Route: 048
     Dates: start: 20080703, end: 20081002
  4. MORPHINE SULFATE [Suspect]
     Indication: PAIN
     Dosage: 30 MG, BID, ORAL; 45MG, BID, ORAL; 30 MG, QD, ORAL; 45 MG, TID, ORAL; 60MG, TID, ORAL
     Route: 048
     Dates: start: 20081002, end: 20081104
  5. MORPHINE SULFATE [Suspect]
     Indication: PAIN
     Dosage: 30 MG, BID, ORAL; 45MG, BID, ORAL; 30 MG, QD, ORAL; 45 MG, TID, ORAL; 60MG, TID, ORAL
     Route: 048
     Dates: start: 20081104, end: 20081211
  6. MORPHINE SULFATE [Suspect]
     Indication: BREAKTHROUGH PAIN
     Dosage: 30 MG, QID, ORAL
     Route: 048
     Dates: start: 20080107, end: 20080117
  7. BENADRYL [Concomitant]
  8. ACETAMINOPHEN [Concomitant]
  9. LASIX [Concomitant]
  10. HUMULIN N [Concomitant]
  11. CENTRUM SILVER /01292501/ (ASCORBIC ACID, CALCIUM, MINERALS NOS, RETIO [Concomitant]
  12. PAROXETINE HCL [Concomitant]
  13. TEMAZEPAM [Concomitant]
  14. FLOVENT HFA (FLUTIASONE PROPIONATE) [Concomitant]
  15. COMBIVENT /01033501/ (IPRATROPIUM BROMIDE, SALBUTAMOL) [Concomitant]
  16. XANAX [Concomitant]
  17. ETOPOSIDE [Concomitant]
  18. CARBOPLATIN [Concomitant]
  19. NEULASTA [Concomitant]
  20. LORAZEPAM [Concomitant]
  21. MAGNSEIUM CITRATE (MAGNESIUM CITRATE) [Concomitant]
  22. SENOKOT /00142201/ (SENNA ALEXANDRINA) [Concomitant]
  23. LACTULOSE [Concomitant]
  24. ACYCLOVIR /00587301/ (ACICLOVIR) [Concomitant]
  25. NOVOLIN /00030501/ (INSULIN) [Concomitant]
  26. NOVOLOG [Concomitant]
  27. OXYCODONE AND ACETAMINOPHEN [Concomitant]
  28. VITAMIN B12 /00091801/ (HYDROXOCOBALAMIN) [Concomitant]
  29. PROTONIX [Concomitant]
  30. METFORMIN HCL [Concomitant]
  31. DEXAMETHASONE [Concomitant]
  32. PANTOPRAZOLE SODIUM [Concomitant]
  33. OXYGEN (OXYGEN) [Concomitant]
  34. BENAZEPRIL HYDROCHLORIDE [Concomitant]
  35. DOCUSATE SODIUM (DOCUSATE SODIUM) [Concomitant]
  36. METHADONE HCL [Concomitant]
  37. NEURONTIN [Concomitant]
  38. MORPHINE SULFATE [Concomitant]

REACTIONS (80)
  - ABDOMINAL DISTENSION [None]
  - ABDOMINAL PAIN [None]
  - ADRENAL MASS [None]
  - AGITATION [None]
  - ANAEMIA [None]
  - ANXIETY [None]
  - APHAGIA [None]
  - APNOEA [None]
  - ARTHRALGIA [None]
  - ASTHENIA [None]
  - BACK PAIN [None]
  - CELLULITIS [None]
  - CHEST PAIN [None]
  - CHILLS [None]
  - CONFUSIONAL STATE [None]
  - CONSTIPATION [None]
  - CONVULSION [None]
  - COUGH [None]
  - DEAFNESS [None]
  - DECREASED APPETITE [None]
  - DEHYDRATION [None]
  - DELIRIUM [None]
  - DEPRESSED LEVEL OF CONSCIOUSNESS [None]
  - DIABETES MELLITUS INADEQUATE CONTROL [None]
  - DIPLEGIA [None]
  - DISEASE RECURRENCE [None]
  - DRY MOUTH [None]
  - DYSARTHRIA [None]
  - DYSPHAGIA [None]
  - DYSPNOEA [None]
  - ENCEPHALOPATHY [None]
  - EYE PRURITUS [None]
  - FAECES HARD [None]
  - FAILURE TO THRIVE [None]
  - FALL [None]
  - FATIGUE [None]
  - FEELING COLD [None]
  - GAIT DISTURBANCE [None]
  - HALLUCINATION, VISUAL [None]
  - HEADACHE [None]
  - HEART RATE IRREGULAR [None]
  - HYPERGLYCAEMIA [None]
  - HYPERHIDROSIS [None]
  - HYPOAESTHESIA [None]
  - HYPOPHAGIA [None]
  - HYPOXIA [None]
  - INCREASED VISCOSITY OF BRONCHIAL SECRETION [None]
  - INFECTION [None]
  - INSOMNIA [None]
  - LETHARGY [None]
  - MENTAL STATUS CHANGES [None]
  - METASTASES TO ADRENALS [None]
  - MICTURITION URGENCY [None]
  - MUCOSAL INFLAMMATION [None]
  - MUSCULAR WEAKNESS [None]
  - MUSCULOSKELETAL PAIN [None]
  - NASAL DISCOMFORT [None]
  - NAUSEA [None]
  - NEURALGIA [None]
  - OCULAR HYPERAEMIA [None]
  - OEDEMA [None]
  - OEDEMA PERIPHERAL [None]
  - PAIN IN EXTREMITY [None]
  - PALLOR [None]
  - PERICARDIAL EFFUSION [None]
  - PLEURAL EFFUSION [None]
  - POLYDIPSIA [None]
  - POLYURIA [None]
  - PULMONARY CONGESTION [None]
  - PYREXIA [None]
  - RENAL FAILURE [None]
  - RESTLESSNESS [None]
  - SOMNOLENCE [None]
  - STOMATITIS [None]
  - TACHYCARDIA [None]
  - THROMBOCYTOPENIA [None]
  - TREMOR [None]
  - UNRESPONSIVE TO STIMULI [None]
  - URINE OUTPUT DECREASED [None]
  - WEIGHT DECREASED [None]
